FAERS Safety Report 17629841 (Version 1)
Quarter: 2020Q2

REPORT INFORMATION
  Report Type: Spontaneous
  Country: US (occurrence: US)
  Receive Date: 20200403
  Receipt Date: 20200403
  Transmission Date: 20200713
  Serious: No
  Sender: FDA-Public Use
  Company Number: None

PATIENT
  Age: 64 Year
  Sex: Male

DRUGS (14)
  1. VITAMIN D3 [Concomitant]
     Active Substance: CHOLECALCIFEROL
  2. OLAFT [Concomitant]
  3. ABIRATERONE 250 MG TABS [Suspect]
     Active Substance: ABIRATERONE
     Indication: PROSTATE CANCER
     Route: 048
     Dates: start: 20191213
  4. CASODEX [Concomitant]
     Active Substance: BICALUTAMIDE
  5. MELOXICAM. [Concomitant]
     Active Substance: MELOXICAM
  6. FLEXERIL [Concomitant]
     Active Substance: CYCLOBENZAPRINE HYDROCHLORIDE
  7. ENTERIC FISH OIL [Concomitant]
  8. ZOLPIDEM TARTRATE. [Concomitant]
     Active Substance: ZOLPIDEM TARTRATE
  9. NORCO [Concomitant]
     Active Substance: ACETAMINOPHEN\HYDROCODONE BITARTRATE
  10. PREDNISONE. [Concomitant]
     Active Substance: PREDNISONE
  11. TURMERIC [Concomitant]
     Active Substance: HERBALS\TURMERIC
  12. PROBIOTIC [Concomitant]
     Active Substance: PROBIOTICS NOS
  13. VITAMIN B12 [Concomitant]
     Active Substance: CYANOCOBALAMIN
  14. FLAXSEED [Concomitant]
     Active Substance: FLAX SEED

REACTIONS (4)
  - Neuropathy peripheral [None]
  - Fatigue [None]
  - Myocardial infarction [None]
  - Pain [None]
